FAERS Safety Report 18547228 (Version 2)
Quarter: 2020Q4

REPORT INFORMATION
  Report Type: Spontaneous
  Country: JP (occurrence: JP)
  Receive Date: 20201126
  Receipt Date: 20201229
  Transmission Date: 20210114
  Serious: Yes (Other)
  Sender: FDA-Public Use
  Company Number: JP-B.I. PHARMACEUTICALS,INC./RIDGEFIELD-2020-BI-063581

PATIENT
  Age: 51 Year
  Sex: Female

DRUGS (2)
  1. OXYGEN. [Concomitant]
     Active Substance: OXYGEN
     Indication: PRODUCT USED FOR UNKNOWN INDICATION
     Dosage: (2 L/MIN ON EXERTION)
     Route: 065
  2. OFEV [Suspect]
     Active Substance: NINTEDANIB
     Indication: PLEUROPARENCHYMAL FIBROELASTOSIS
     Route: 048
     Dates: start: 20170628, end: 20180219

REACTIONS (1)
  - Lung disorder [Unknown]
